FAERS Safety Report 5157380-1 (Version None)
Quarter: 2006Q4

REPORT INFORMATION
  Report Type: 
  Country: None (occurrence: None)
  Receive Date: 20061127
  Receipt Date: 20050629
  Transmission Date: 20070319
  Serious: Yes (Hospitalization)
  Sender: FDA-Public Use
  Company Number: US-ROCHE-409132

PATIENT
  Age: 60 Year
  Sex: Female
  Weight: 119.7 kg

DRUGS (12)
  1. PEG-INTERFERON ALFA 2A (RO 25-8310) [Suspect]
     Route: 058
     Dates: start: 20041129
  2. RIBAVIRIN [Suspect]
     Route: 048
     Dates: start: 20041129
  3. METOCLOPRAMIDE [Concomitant]
     Indication: NAUSEA
     Dosage: INDICATION: FOR NAUSEA AND GASTROESOPHAGEAL REFLUX DISEASE (GERD).
     Route: 048
     Dates: start: 20020615
  4. LEXAPRO [Concomitant]
     Indication: DEPRESSION
     Route: 048
     Dates: start: 20040714
  5. LASIX [Concomitant]
     Indication: DIURETIC EFFECT
     Route: 048
     Dates: start: 20050115
  6. SPIRONOLACTONE [Concomitant]
     Indication: DIURETIC EFFECT
     Dosage: { 100 MG PER WEEK FOR UNKNOWN DURATION. FROM 03 JANUARY 2005, 100 MG PER DAY.
     Route: 048
     Dates: start: 20050103
  7. ROBITUSSIN [Concomitant]
     Indication: DIURETIC EFFECT
     Route: 048
  8. CLONIDINE [Concomitant]
     Indication: DIURETIC EFFECT
     Route: 048
     Dates: start: 20020615
  9. ACIPHEX [Concomitant]
     Indication: ANTACID THERAPY
     Route: 048
     Dates: start: 20020615
  10. CLARITIN-D 24 HOUR [Concomitant]
     Indication: SEASONAL ALLERGY
  11. ALBUTEROL [Concomitant]
     Indication: SEASONAL ALLERGY
     Dates: start: 19940615
  12. FORADIL [Concomitant]
     Indication: SEASONAL ALLERGY
     Dates: start: 20030615

REACTIONS (4)
  - ABDOMINAL HERNIA [None]
  - ASTHMA [None]
  - ATELECTASIS [None]
  - PNEUMONIA [None]
